FAERS Safety Report 16270654 (Version 3)
Quarter: 2019Q2

REPORT INFORMATION
  Report Type: Spontaneous
  Country: US (occurrence: US)
  Receive Date: 20190505
  Receipt Date: 20190625
  Transmission Date: 20190711
  Serious: No
  Sender: FDA-Public Use
  Company Number: US-JNJFOC-20190431353

PATIENT
  Age: 63 Year
  Sex: Female
  Weight: 59.02 kg

DRUGS (6)
  1. FENTANYL. [Suspect]
     Active Substance: FENTANYL
     Route: 062
  2. CLONAPIN [Concomitant]
     Active Substance: CLONAZEPAM
     Indication: PRODUCT USED FOR UNKNOWN INDICATION
     Route: 065
  3. FENTANYL. [Suspect]
     Active Substance: FENTANYL
     Route: 062
  4. FENTANYL. [Suspect]
     Active Substance: FENTANYL
     Route: 062
  5. FENTANYL. [Suspect]
     Active Substance: FENTANYL
     Route: 062
  6. FENTANYL. [Suspect]
     Active Substance: FENTANYL
     Indication: PRODUCT USED FOR UNKNOWN INDICATION
     Route: 062
     Dates: start: 2007, end: 2007

REACTIONS (16)
  - Pain [Unknown]
  - Weight decreased [Not Recovered/Not Resolved]
  - Therapeutic response increased [Unknown]
  - Product storage error [Unknown]
  - Visual impairment [Not Recovered/Not Resolved]
  - Phobia [Not Recovered/Not Resolved]
  - Fear [Not Recovered/Not Resolved]
  - Crying [Not Recovered/Not Resolved]
  - Underdose [Unknown]
  - Walking aid user [Unknown]
  - Product dose omission [Unknown]
  - Overdose [Unknown]
  - Hypophagia [Not Recovered/Not Resolved]
  - Hypertension [Unknown]
  - Wrong technique in product usage process [Unknown]
  - Back disorder [Not Recovered/Not Resolved]

NARRATIVE: CASE EVENT DATE: 20190614
